FAERS Safety Report 7875060-6 (Version None)
Quarter: 2011Q4

REPORT INFORMATION
  Report Type: 
  Country: None (occurrence: None)
  Receive Date: 20111003
  Receipt Date: 20110623
  Transmission Date: 20120403
  Serious: Yes (Other)
  Sender: FDA-Public Use
  Company Number: 287643USA

PATIENT
  Sex: Female

DRUGS (1)
  1. VENLAFAXINE [Suspect]

REACTIONS (2)
  - SUICIDAL IDEATION [None]
  - WITHDRAWAL SYNDROME [None]
